FAERS Safety Report 15655698 (Version 1)
Quarter: 2018Q4

REPORT INFORMATION
  Report Type: Spontaneous
  Country: US (occurrence: US)
  Receive Date: 20181126
  Receipt Date: 20181126
  Transmission Date: 20190205
  Serious: No
  Sender: FDA-Public Use
  Company Number: US-TEVA-2018-US-978024

PATIENT
  Sex: Female

DRUGS (1)
  1. AZITHROMYCIN ANHYDROUS. [Suspect]
     Active Substance: AZITHROMYCIN ANHYDROUS
     Dosage: DOSE STRENGTH:  200 MG/5 ML
     Route: 065

REACTIONS (3)
  - Eczema [Unknown]
  - Abnormal behaviour [Unknown]
  - Reaction to excipient [Unknown]
